FAERS Safety Report 15101871 (Version 1)
Quarter: 2018Q3

REPORT INFORMATION
  Report Type: Spontaneous
  Country: US (occurrence: US)
  Receive Date: 20180703
  Receipt Date: 20180703
  Transmission Date: 20181010
  Serious: No
  Sender: FDA-Public Use
  Company Number: US-SA-2018SA173691

PATIENT
  Age: 28 Year
  Sex: Female
  Weight: 70.4 kg

DRUGS (1)
  1. FABRAZYME [Suspect]
     Active Substance: AGALSIDASE BETA
     Dosage: 1.06 MG/KG, QOW
     Route: 041
     Dates: start: 201510

REACTIONS (1)
  - Exposure during pregnancy [Unknown]
